FAERS Safety Report 11828118 (Version 1)
Quarter: 2015Q4

REPORT INFORMATION
  Report Type: Spontaneous
  Country: FR (occurrence: FR)
  Receive Date: 20151211
  Receipt Date: 20151211
  Transmission Date: 20160305
  Serious: Yes (Hospitalization)
  Sender: FDA-Public Use
  Company Number: FR-ABBVIE-15P-056-1518430-00

PATIENT
  Age: 80 Year
  Sex: Male

DRUGS (1)
  1. ENANTONE LP [Suspect]
     Active Substance: LEUPROLIDE ACETATE
     Indication: PROSTATE CANCER
     Dosage: 11.25 MG, UNK
     Route: 050
     Dates: start: 201409

REACTIONS (1)
  - Injection site nodule [Not Recovered/Not Resolved]

NARRATIVE: CASE EVENT DATE: 201409
